FAERS Safety Report 10960162 (Version 1)
Quarter: 2015Q1

REPORT INFORMATION
  Report Type: Spontaneous
  Country: NL (occurrence: None)
  Receive Date: 20150325
  Receipt Date: 20150325
  Transmission Date: 20150721
  Serious: Yes (Death)
  Sender: FDA-Public Use
  Company Number: FK201501311

PATIENT
  Sex: Female

DRUGS (10)
  1. ROCURONIUMBROMID KABI 10 MG/ML (ROCURONIUM BROMIDE) (ROCURONIUM BROMIDE) [Suspect]
     Active Substance: ROCURONIUM BROMIDE
     Indication: EUTHANASIA
     Dosage: 150 MG, 2 IN 1 TOTAL
  2. PREDNISOLONE. [Concomitant]
     Active Substance: PREDNISOLONE
  3. LEVODOPA [Concomitant]
     Active Substance: LEVODOPA
  4. FENTANYL PATCHES (FENTANYL) [Concomitant]
  5. OMEPRAZOLE. [Concomitant]
     Active Substance: OMEPRAZOLE
  6. DOMPERINDONE [Concomitant]
  7. ALLOPURINOL. [Concomitant]
     Active Substance: ALLOPURINOL
  8. THIOPENTAL [Suspect]
     Active Substance: THIOPENTAL
     Indication: EUTHANASIA
     Dosage: 2 MG, 1 IN 1 TOTAL
  9. MOVICOL (POLYETHYL. GLYC. W/POTAS. CHLOR./SOD. BICARB.) [Concomitant]
  10. PARACETAMOL [Concomitant]
     Active Substance: ACETAMINOPHEN

REACTIONS (1)
  - Drug effect delayed [None]

NARRATIVE: CASE EVENT DATE: 20141130
